FAERS Safety Report 8260048-6 (Version None)
Quarter: 2012Q2

REPORT INFORMATION
  Report Type: 
  Country: None (occurrence: None)
  Receive Date: 20120404
  Receipt Date: 20120320
  Transmission Date: 20120825
  Serious: Yes (Other)
  Sender: FDA-Public Use
  Company Number: US-WATSON-2012-04936

PATIENT
  Sex: Female
  Weight: 77 kg

DRUGS (2)
  1. FENTANYL-75 [Suspect]
     Indication: INTERVERTEBRAL DISC DEGENERATION
     Dosage: 75 MCG Q 72 HOURS
     Route: 062
     Dates: start: 20120306, end: 20120319
  2. FENTANYL-75 [Suspect]
     Indication: PELVIC ADHESIONS

REACTIONS (4)
  - WITHDRAWAL SYNDROME [None]
  - DRUG INEFFECTIVE [None]
  - CONVULSION [None]
  - FORMICATION [None]
